FAERS Safety Report 11175149 (Version 1)
Quarter: 2015Q2

REPORT INFORMATION
  Report Type: Spontaneous
  Country: NO (occurrence: NO)
  Receive Date: 20150609
  Receipt Date: 20150609
  Transmission Date: 20150821
  Serious: Yes (Life-Threatening, Hospitalization, Other)
  Sender: FDA-Public Use
  Company Number: NO-UCBSA-2015017835

PATIENT
  Age: 67 Year
  Sex: Female

DRUGS (6)
  1. CLINDAMYCIN [Concomitant]
     Active Substance: CLINDAMYCIN\CLINDAMYCIN PHOSPHATE
     Indication: PRODUCT USED FOR UNKNOWN INDICATION
     Dosage: UNK
  2. CIMZIA [Suspect]
     Active Substance: CERTOLIZUMAB PEGOL
     Indication: PSORIATIC ARTHROPATHY
     Dosage: 1 DF, EV 2 WEEKS(QOW)
     Route: 058
     Dates: start: 201410, end: 201501
  3. FLUCONAZOL [Concomitant]
     Active Substance: FLUCONAZOLE
     Indication: PRODUCT USED FOR UNKNOWN INDICATION
     Dosage: UNK
  4. NYSTATIN. [Concomitant]
     Active Substance: NYSTATIN
     Indication: KLEBSIELLA INFECTION
     Dosage: UNK
     Dates: start: 20140419, end: 20150430
  5. IMIPENEM [Concomitant]
     Active Substance: IMIPENEM
     Indication: PRODUCT USED FOR UNKNOWN INDICATION
     Dosage: UNK
  6. NYSTATIN. [Concomitant]
     Active Substance: NYSTATIN
     Indication: FUNGAL INFECTION

REACTIONS (5)
  - Lung infection [Recovering/Resolving]
  - Vaginal haemorrhage [Recovered/Resolved]
  - Acute kidney injury [Unknown]
  - Axonal neuropathy [Unknown]
  - Guillain-Barre syndrome [Unknown]

NARRATIVE: CASE EVENT DATE: 201501
